FAERS Safety Report 4331767-9 (Version None)
Quarter: 2004Q2

REPORT INFORMATION
  Report Type: 
  Country: None (occurrence: None)
  Receive Date: 20040405
  Receipt Date: 20030630
  Transmission Date: 20050107
  Serious: No
  Sender: FDA-Public Use
  Company Number: US-GLAXOSMITHKLINE-A0414789A

PATIENT
  Age: 75 Year
  Sex: Male

DRUGS (3)
  1. FLOVENT [Suspect]
     Indication: EMPHYSEMA
     Dosage: 440MCG TWICE PER DAY
     Route: 055
     Dates: start: 20010101
  2. SEREVENT [Suspect]
     Indication: EMPHYSEMA
     Route: 055
  3. COMBIVENT [Concomitant]
     Indication: EMPHYSEMA
     Route: 065

REACTIONS (3)
  - DRUG INEFFECTIVE [None]
  - MUSCLE CRAMP [None]
  - PARAESTHESIA [None]
